FAERS Safety Report 19959303 (Version 1)
Quarter: 2021Q4

REPORT INFORMATION
  Report Type: Spontaneous
  Country: US (occurrence: US)
  Receive Date: 20211015
  Receipt Date: 20211015
  Transmission Date: 20220303
  Serious: Yes (Congenital Anomaly, Other)
  Sender: FDA-Public Use
  Company Number: US-NOVARTISPH-NVSC2021US232882

PATIENT
  Sex: Male

DRUGS (2)
  1. ZOFRAN [Suspect]
     Active Substance: ONDANSETRON HYDROCHLORIDE
     Indication: Foetal exposure during pregnancy
     Route: 064
  2. ZOFRAN [Suspect]
     Active Substance: ONDANSETRON HYDROCHLORIDE
     Indication: Foetal exposure during pregnancy
     Dosage: MOTHER^S DOSE: 16 MG, ONCE DAILY (QD)
     Route: 064

REACTIONS (9)
  - Congenital eyelid malformation [Unknown]
  - Congenital eye disorder [Unknown]
  - Congenital tongue anomaly [Unknown]
  - Cleft palate [Unknown]
  - Autism spectrum disorder [Unknown]
  - Foetal exposure during pregnancy [Unknown]
  - Underweight [Unknown]
  - Visual impairment [Unknown]
  - Jaundice neonatal [Unknown]
